FAERS Safety Report 7627000-2 (Version None)
Quarter: 2011Q3

REPORT INFORMATION
  Report Type: 
  Country: None (occurrence: None)
  Receive Date: 20110721
  Receipt Date: 20110713
  Transmission Date: 20111222
  Serious: Yes (Hospitalization, Other)
  Sender: FDA-Public Use
  Company Number: JP-MERCK-1107USA00217

PATIENT
  Age: 87 Year
  Sex: Male
  Weight: 45 kg

DRUGS (15)
  1. ZOLPIDEM [Suspect]
     Route: 048
     Dates: end: 20110613
  2. METOPROLOL TARTRATE [Concomitant]
     Indication: HYPERTENSION
     Route: 065
     Dates: end: 20110613
  3. DIAZEPAM [Concomitant]
     Indication: RESTLESSNESS
     Route: 065
     Dates: start: 20110605, end: 20110611
  4. HALTHROW [Concomitant]
     Indication: HYPERTENSION
     Route: 065
     Dates: end: 20110613
  5. VOLTAREN [Concomitant]
     Route: 065
  6. WARFARIN [Concomitant]
     Indication: CEREBRAL INFARCTION
     Route: 065
  7. ALOSENN [Concomitant]
     Route: 065
  8. RHYTHMY [Concomitant]
     Route: 065
     Dates: start: 20110608, end: 20110613
  9. METOPROLOL TARTRATE [Concomitant]
     Indication: ARRHYTHMIA
     Route: 065
     Dates: end: 20110613
  10. NEUROTROPIN [Concomitant]
     Route: 065
     Dates: start: 20110603, end: 20110609
  11. CELECOXIB [Concomitant]
     Route: 065
     Dates: end: 20110609
  12. ISALON [Concomitant]
     Route: 065
     Dates: end: 20110609
  13. SODIUM CHLORIDE [Concomitant]
     Route: 065
     Dates: start: 20110603, end: 20110609
  14. PEPCID RPD [Suspect]
     Route: 048
     Dates: start: 20110614
  15. EVIPROSTAT [Concomitant]
     Indication: BENIGN PROSTATIC HYPERPLASIA
     Route: 065

REACTIONS (4)
  - DELIRIUM [None]
  - LUMBAR VERTEBRAL FRACTURE [None]
  - DELUSION [None]
  - SOMNAMBULISM [None]
